FAERS Safety Report 19040947 (Version 3)
Quarter: 2021Q2

REPORT INFORMATION
  Report Type: Spontaneous
  Country: AR (occurrence: AR)
  Receive Date: 20210323
  Receipt Date: 20210629
  Transmission Date: 20210717
  Serious: Yes (Other)
  Sender: FDA-Public Use
  Company Number: AR-AMGEN-ARGSP2021043740

PATIENT
  Age: 39 Year
  Sex: Female

DRUGS (2)
  1. ENBREL [Suspect]
     Active Substance: ETANERCEPT
     Indication: RHEUMATOID ARTHRITIS
     Dosage: 50 MG, WEEKLY
     Route: 065
     Dates: start: 20080709
  2. ENBREL [Suspect]
     Active Substance: ETANERCEPT
     Dosage: 50 MG, WEEKLY
     Route: 065
     Dates: end: 20210612

REACTIONS (6)
  - Device failure [Not Recovered/Not Resolved]
  - Blindness [Unknown]
  - Poor quality device used [Not Recovered/Not Resolved]
  - Visual impairment [Not Recovered/Not Resolved]
  - Expired product administered [Not Recovered/Not Resolved]
  - Product expiration date issue [Not Recovered/Not Resolved]
